FAERS Safety Report 5029866-1 (Version None)
Quarter: 2006Q2

REPORT INFORMATION
  Report Type: 
  Country: None (occurrence: None)
  Receive Date: 20060620
  Receipt Date: 20060612
  Transmission Date: 20061013
  Serious: Yes (Other)
  Sender: FDA-Public Use
  Company Number: 2006PK01309

PATIENT
  Age: 56 Year
  Sex: Male

DRUGS (3)
  1. BELOC ZOK MITE [Suspect]
     Route: 048
     Dates: start: 20060603
  2. CARBAMAZEPINE [Interacting]
  3. PHENYTOIN [Interacting]

REACTIONS (2)
  - DRUG INTERACTION [None]
  - EPILEPSY [None]
